FAERS Safety Report 7513033-3 (Version None)
Quarter: 2011Q2

REPORT INFORMATION
  Report Type: 
  Country: None (occurrence: None)
  Receive Date: 20110531
  Receipt Date: 20110524
  Transmission Date: 20111010
  Serious: Yes (Hospitalization)
  Sender: FDA-Public Use
  Company Number: FR-TEVA-283152ISR

PATIENT
  Sex: Female
  Weight: 65 kg

DRUGS (7)
  1. LENALIDOMIDE [Suspect]
     Dosage: 25 MILLIGRAM;
     Route: 048
     Dates: start: 20110411, end: 20110501
  2. LENALIDOMIDE [Suspect]
     Indication: MULTIPLE MYELOMA
     Dosage: 25 MILLIGRAM;
     Route: 048
     Dates: start: 20100802
  3. DEXAMETHASONE [Suspect]
     Dosage: 20 MILLIGRAM;
     Dates: start: 20110411, end: 20110502
  4. ACETYLSALICYLATE LYSINE [Concomitant]
     Indication: THROMBOSIS PROPHYLAXIS
     Dosage: 75 MILLIGRAM;
     Route: 048
     Dates: start: 20070101
  5. LENALIDOMIDE [Suspect]
     Dosage: 25 MILLIGRAM;
     Route: 048
     Dates: start: 20110509
  6. DEXAMETHASONE [Suspect]
     Indication: MULTIPLE MYELOMA
     Dosage: 40 MILLIGRAM;
     Dates: start: 20100802
  7. DEXAMETHASONE [Suspect]
     Dosage: 20 MILLIGRAM;
     Dates: start: 20110509

REACTIONS (2)
  - INFECTION [None]
  - DIARRHOEA [None]
